FAERS Safety Report 6806337-0 (Version None)
Quarter: 2010Q2

REPORT INFORMATION
  Report Type: 
  Country: None (occurrence: None)
  Receive Date: 20100629
  Receipt Date: 20080206
  Transmission Date: 20101027
  Serious: No
  Sender: FDA-Public Use
  Company Number: US-PFIZER INC-2008011126

PATIENT
  Sex: Male

DRUGS (12)
  1. VIAGRA [Suspect]
     Dates: start: 20040101
  2. NEURONTIN [Concomitant]
  3. KLONOPIN [Concomitant]
  4. HYDROCHLOROTHIAZIDE [Concomitant]
  5. ACETYLSALICYLIC ACID [Concomitant]
  6. MULTI-VITAMINS [Concomitant]
  7. DEPAKOTE [Concomitant]
  8. TRAZODONE HYDROCHLORIDE [Concomitant]
  9. BUPROPION HYDROCHLORIDE [Concomitant]
  10. LOVASTATIN [Concomitant]
  11. HYPNOTICS AND SEDATIVES [Concomitant]
  12. ALL OTHER THERAPEUTIC PRODUCTS [Concomitant]

REACTIONS (4)
  - DRUG INEFFECTIVE [None]
  - EYE DISORDER [None]
  - PHOTOPHOBIA [None]
  - VISION BLURRED [None]
